FAERS Safety Report 10060698 (Version 3)
Quarter: 2014Q2

REPORT INFORMATION
  Report Type: Report from Study
  Country: BR (occurrence: BR)
  Receive Date: 20140404
  Receipt Date: 20140515
  Transmission Date: 20141212
  Serious: Yes (Hospitalization, Other)
  Sender: FDA-Public Use
  Company Number: BR-ABBVIE-14P-020-1218218-00

PATIENT
  Age: 57 Year
  Sex: Female
  Weight: 78 kg

DRUGS (14)
  1. HUMIRA [Suspect]
     Indication: RHEUMATOID ARTHRITIS
     Route: 058
     Dates: start: 20140226, end: 20140226
  2. METHOTREXATE [Concomitant]
     Indication: ARTHRITIS
     Route: 058
     Dates: start: 2010
  3. PREDNISONE [Concomitant]
     Indication: RHEUMATOID ARTHRITIS
     Dosage: IN THE MORNING
     Route: 048
     Dates: start: 2008
  4. ENALAPRIL [Concomitant]
     Indication: BLOOD PRESSURE ABNORMAL
     Route: 048
     Dates: start: 2008
  5. FOLIC ACID [Concomitant]
     Indication: RHEUMATOID ARTHRITIS
     Dosage: THE AFTER METHOTREXATE ADMINISTRATION
     Route: 048
     Dates: start: 2010
  6. OMEPRAZOLE [Concomitant]
     Indication: GASTRIC DISORDER
     Dosage: IN FASTING
     Route: 048
     Dates: start: 2010
  7. CALCIUM CARBONATE [Concomitant]
     Indication: BONE DISORDER
     Route: 048
     Dates: start: 2010
  8. CALCIUM CARBONATE [Concomitant]
     Indication: VITAMIN SUPPLEMENTATION
  9. CALCIUM CARBONATE [Concomitant]
     Indication: PROPHYLAXIS
  10. SIMVASTATINE [Concomitant]
     Indication: BLOOD CHOLESTEROL ABNORMAL
     Dosage: AT NIGHT
     Route: 048
     Dates: start: 2013
  11. ACETYLSALICYLIC ACID [Concomitant]
     Indication: COAGULOPATHY
     Dosage: AFTER LUNCH
     Route: 048
     Dates: start: 2011
  12. FLUOXETINE [Concomitant]
     Indication: DEPRESSION
     Dosage: IN THE MORNING
     Route: 048
     Dates: start: 2012
  13. PARACETAMOL [Concomitant]
     Indication: PAIN
     Dosage: AS NEEDED
     Route: 048
  14. PARACETAMOL [Concomitant]
     Indication: HEADACHE

REACTIONS (4)
  - Nephritis [Recovering/Resolving]
  - Urinary tract infection [Recovering/Resolving]
  - Kidney infection [Recovering/Resolving]
  - Renal pain [Recovered/Resolved]
